FAERS Safety Report 4291420-7 (Version None)
Quarter: 2004Q1

REPORT INFORMATION
  Report Type: 
  Country: None (occurrence: None)
  Receive Date: 20040211
  Receipt Date: 20040116
  Transmission Date: 20041129
  Serious: Yes (Death, Hospitalization)
  Sender: FDA-Public Use
  Company Number: PHRM2004FR00550

PATIENT
  Age: 28 Year
  Sex: Male

DRUGS (7)
  1. NEORAL [Suspect]
     Indication: LUNG TRANSPLANT
     Route: 048
     Dates: start: 20021010, end: 20030315
  2. CORTANCYL [Suspect]
     Indication: LUNG TRANSPLANT
     Dosage: 10 MG DAILY
     Route: 048
     Dates: start: 20010215, end: 20031124
  3. RAPAMUNE [Suspect]
     Indication: LUNG TRANSPLANT
     Dates: start: 20030816, end: 20030829
  4. PROGRAF [Suspect]
     Dosage: 3 MG DAILY
     Route: 048
     Dates: start: 20010215, end: 20021010
  5. PROGRAF [Suspect]
     Route: 048
     Dates: start: 20030315, end: 20030816
  6. PROGRAF [Suspect]
     Route: 048
     Dates: start: 20030829
  7. CELLCEPT [Suspect]
     Indication: LUNG TRANSPLANT
     Route: 048
     Dates: start: 20010215, end: 20030715

REACTIONS (17)
  - ACUTE RESPIRATORY DISTRESS SYNDROME [None]
  - ASPERGILLOSIS [None]
  - BACTERIAL INFECTION [None]
  - CACHEXIA [None]
  - CANDIDIASIS [None]
  - GASTROSTOMY TUBE INSERTION [None]
  - GENERAL PHYSICAL HEALTH DETERIORATION [None]
  - HAEMOPHILUS INFECTION [None]
  - INFLUENZA [None]
  - MULTI-ORGAN FAILURE [None]
  - MYOPATHY [None]
  - PSEUDOMONAS INFECTION [None]
  - PULMONARY FIBROSIS [None]
  - RESPIRATORY FAILURE [None]
  - RESTRICTIVE PULMONARY DISEASE [None]
  - SALMONELLOSIS [None]
  - WEIGHT DECREASED [None]
